FAERS Safety Report 4654377-2 (Version None)
Quarter: 2005Q2

REPORT INFORMATION
  Report Type: 
  Country: None (occurrence: None)
  Receive Date: 20050506
  Receipt Date: 20050422
  Transmission Date: 20051028
  Serious: Yes (Other)
  Sender: FDA-Public Use
  Company Number: GB-JNJFOC-20050405491

PATIENT
  Sex: Female

DRUGS (3)
  1. REMICADE [Suspect]
     Indication: DRUG USE FOR UNKNOWN INDICATION
     Dosage: 8TH REMICADE INFUSION
     Route: 042
  2. PIRITON [Concomitant]
     Indication: PREMEDICATION
  3. HYDROCORTISONE [Concomitant]
     Indication: PREMEDICATION

REACTIONS (4)
  - FLUSHING [None]
  - INFUSION RELATED REACTION [None]
  - OEDEMA [None]
  - THROAT TIGHTNESS [None]
